FAERS Safety Report 7506558-8 (Version None)
Quarter: 2011Q2

REPORT INFORMATION
  Report Type: 
  Country: None (occurrence: None)
  Receive Date: 20110526
  Receipt Date: 20110513
  Transmission Date: 20111010
  Serious: Yes (Hospitalization)
  Sender: FDA-Public Use
  Company Number: JP-JNJFOC-20101204781

PATIENT
  Sex: Female
  Weight: 46 kg

DRUGS (14)
  1. REMICADE [Suspect]
     Dosage: 3 DOSES AT 3 MG/KG (2 ON UNSPECIFIED DATES)
     Route: 042
     Dates: start: 20100514
  2. AZULFIDINE [Concomitant]
     Indication: RHEUMATOID ARTHRITIS
     Route: 048
     Dates: start: 20090729
  3. RHEUMATREX [Suspect]
     Route: 048
     Dates: start: 20091118, end: 20101110
  4. FOLIC ACID [Concomitant]
     Indication: ANAEMIA
     Route: 048
     Dates: start: 20090916, end: 20101110
  5. RIMATIL [Concomitant]
     Indication: RHEUMATOID ARTHRITIS
     Route: 048
     Dates: start: 20100210
  6. RHEUMATREX [Suspect]
     Indication: RHEUMATOID ARTHRITIS
     Route: 048
     Dates: start: 20090916, end: 20091117
  7. FOLIC ACID [Concomitant]
     Indication: FOLATE DEFICIENCY
     Route: 048
     Dates: start: 20090916, end: 20101110
  8. ISONIAZID [Concomitant]
     Indication: TUBERCULOSIS
     Route: 048
     Dates: start: 20100414, end: 20101110
  9. REMICADE [Suspect]
     Indication: RHEUMATOID ARTHRITIS
     Dosage: TOTAL OF 5 INFUSIONS
     Route: 042
     Dates: start: 20101029
  10. GOKUMISIN [Concomitant]
     Indication: LIVER DISORDER
     Route: 048
     Dates: start: 20100514, end: 20101110
  11. REMICADE [Suspect]
     Dosage: 4TH INFUSION
     Route: 042
     Dates: start: 20100901
  12. PYRIDOXAL PHOSPHATE [Concomitant]
     Indication: VITAMIN B6 DEFICIENCY
     Route: 048
     Dates: start: 20100414, end: 20101110
  13. AZULFIDINE [Concomitant]
     Route: 048
     Dates: start: 20090714, end: 20090728
  14. CRESTOR [Concomitant]
     Indication: HYPERCHOLESTEROLAEMIA
     Route: 048
     Dates: start: 20090916

REACTIONS (1)
  - GASTRIC CANCER [None]
